FAERS Safety Report 7798662-4 (Version None)
Quarter: 2011Q4

REPORT INFORMATION
  Report Type: 
  Country: None (occurrence: None)
  Receive Date: 20111006
  Receipt Date: 20110929
  Transmission Date: 20120403
  Serious: Yes (Hospitalization)
  Sender: FDA-Public Use
  Company Number: US-BIOGENIDEC-2011BI036771

PATIENT
  Age: 55 Year
  Sex: Female
  Weight: 91 kg

DRUGS (3)
  1. ADDERALL 5 [Concomitant]
     Indication: FATIGUE
     Route: 048
     Dates: start: 20080701
  2. TYSABRI [Suspect]
     Indication: MULTIPLE SCLEROSIS
     Route: 042
     Dates: start: 20071204
  3. VITAMIN D [Concomitant]

REACTIONS (1)
  - OVARIAN CANCER [None]
